FAERS Safety Report 16453064 (Version 1)
Quarter: 2019Q2

REPORT INFORMATION
  Report Type: Spontaneous
  Country: US (occurrence: US)
  Receive Date: 20190619
  Receipt Date: 20190619
  Transmission Date: 20190711
  Serious: Yes (Hospitalization, Other)
  Sender: FDA-Public Use
  Company Number: US-SA-2019SA161154

PATIENT
  Age: 58 Year
  Sex: Male

DRUGS (1)
  1. DUPIXENT [Suspect]
     Active Substance: DUPILUMAB
     Indication: ASTHMA

REACTIONS (7)
  - Rash [Unknown]
  - Sputum abnormal [Unknown]
  - Pruritus [Unknown]
  - Hospitalisation [Unknown]
  - Eosinophilia [Unknown]
  - Blood count abnormal [Unknown]
  - Therapeutic response decreased [Unknown]
